FAERS Safety Report 18382436 (Version 1)
Quarter: 2020Q4

REPORT INFORMATION
  Report Type: Spontaneous
  Country: US (occurrence: US)
  Receive Date: 20201014
  Receipt Date: 20201014
  Transmission Date: 20210114
  Serious: No
  Sender: FDA-Public Use
  Company Number: US-ALLERGAN-2031060US

PATIENT
  Sex: Female
  Weight: 58.97 kg

DRUGS (2)
  1. DUEXIS [Concomitant]
     Active Substance: FAMOTIDINE\IBUPROFEN
     Dosage: 800MG IBU 26.6MG FAMOTIDINE
  2. UBRELVY [Suspect]
     Active Substance: UBROGEPANT
     Indication: MIGRAINE
     Dosage: 100MG UNKNOWN

REACTIONS (1)
  - Reflux gastritis [Recovered/Resolved]
